FAERS Safety Report 11746019 (Version 1)
Quarter: 2015Q4

REPORT INFORMATION
  Report Type: Spontaneous
  Country: US (occurrence: None)
  Receive Date: 20151116
  Receipt Date: 20151116
  Transmission Date: 20160304
  Serious: No
  Sender: FDA-Public Use
  Company Number: None

PATIENT
  Age: 59 Year
  Sex: Female

DRUGS (1)
  1. TETRABENAZINE. [Suspect]
     Active Substance: TETRABENAZINE
     Indication: BIPOLAR DISORDER
     Dosage: 12.5 MG TABS EVERY MORNING ORAL
     Route: 048
     Dates: start: 20150910

REACTIONS (2)
  - Swollen tongue [None]
  - Product substitution issue [None]

NARRATIVE: CASE EVENT DATE: 20151109
